FAERS Safety Report 4523952-8 (Version None)
Quarter: 2004Q4

REPORT INFORMATION
  Report Type: 
  Country: None (occurrence: None)
  Receive Date: 20041209
  Receipt Date: 20041103
  Transmission Date: 20050328
  Serious: Yes (Life-Threatening, Hospitalization)
  Sender: FDA-Public Use
  Company Number: A03200403696

PATIENT
  Age: 58 Year
  Sex: Female
  Weight: 58 kg

DRUGS (4)
  1. ELOXATIN [Suspect]
     Indication: COLON CANCER METASTATIC
     Dosage: INTRAVENOUS NOS
     Route: 042
     Dates: start: 20040825, end: 20040825
  2. AVASTIN [Suspect]
     Indication: COLON CANCER METASTATIC
     Dosage: INTRAVENOUS NOS
     Route: 042
     Dates: start: 20040825, end: 20040825
  3. FLUOROURACIL [Concomitant]
  4. LEUCOVORIN [Concomitant]

REACTIONS (3)
  - ACUTE MYELOID LEUKAEMIA [None]
  - RASH [None]
  - REFLEXES ABNORMAL [None]
